FAERS Safety Report 16984699 (Version 1)
Quarter: 2019Q4

REPORT INFORMATION
  Report Type: Spontaneous
  Country: US (occurrence: US)
  Receive Date: 20191101
  Receipt Date: 20191101
  Transmission Date: 20200122
  Serious: No
  Sender: FDA-Public Use
  Company Number: US-PERRIGO-19US001457

PATIENT
  Age: 68 Year
  Sex: Female
  Weight: 56.69 kg

DRUGS (2)
  1. CICLOPIROX. [Suspect]
     Active Substance: CICLOPIROX
     Indication: ONYCHOMYCOSIS
     Dosage: 1 APPLICATON, QD
     Route: 061
     Dates: start: 20190120, end: 20190127
  2. CICLOPIROX. [Suspect]
     Active Substance: CICLOPIROX
     Dosage: 1 APPLICATON, SINGLE
     Route: 061
     Dates: start: 20190127, end: 20190127

REACTIONS (3)
  - Intentional product use issue [Recovered/Resolved]
  - Product dose omission [Unknown]
  - Incorrect product administration duration [Recovered/Resolved]

NARRATIVE: CASE EVENT DATE: 20190120
